FAERS Safety Report 5907717-8 (Version None)
Quarter: 2008Q4

REPORT INFORMATION
  Report Type: 
  Country: None (occurrence: None)
  Receive Date: 20081003
  Receipt Date: 19940824
  Transmission Date: 20090506
  Serious: Yes (Death)
  Sender: FDA-Public Use
  Company Number: US-ROCHE-94080007-TOR020A

PATIENT
  Age: 69 Year
  Sex: Female

DRUGS (5)
  1. DEMADEX [Suspect]
     Route: 048
     Dates: start: 19940624
  2. NAPROSYN [Suspect]
     Indication: DRUG USE FOR UNKNOWN INDICATION
     Route: 065
  3. CAPTOPRIL [Concomitant]
     Dosage: SWITCHED HERSELF TO 25MG BID
  4. CAPTOPRIL [Concomitant]
  5. NITROGLYCERIN [Concomitant]

REACTIONS (1)
  - DEATH [None]
